FAERS Safety Report 24192932 (Version 1)
Quarter: 2024Q3

REPORT INFORMATION
  Report Type: Report from Study
  Country: US (occurrence: None)
  Receive Date: 20240809
  Receipt Date: 20240809
  Transmission Date: 20241017
  Serious: Yes (Hospitalization)
  Sender: ASTRAZENECA
  Company Number: 2024A176291

PATIENT
  Sex: Female

DRUGS (8)
  1. TAGRISSO [Suspect]
     Active Substance: OSIMERTINIB
     Indication: Non-small cell lung cancer
     Route: 048
     Dates: start: 202108
  2. TAGRISSO [Suspect]
     Active Substance: OSIMERTINIB
     Indication: Metastases to breast
     Route: 048
     Dates: start: 202108
  3. ANASTROZOLE [Concomitant]
     Active Substance: ANASTROZOLE
  4. ATORVASTATIN [Concomitant]
     Active Substance: ATORVASTATIN
  5. VITAMINS [Concomitant]
     Active Substance: VITAMINS
  6. METOPROLOL [Concomitant]
     Active Substance: METOPROLOL
  7. VITAMIN D3 [Concomitant]
     Active Substance: CHOLECALCIFEROL
  8. XARELTO [Concomitant]
     Active Substance: RIVAROXABAN

REACTIONS (3)
  - Electrocardiogram abnormal [Recovering/Resolving]
  - Diarrhoea [Recovering/Resolving]
  - COVID-19 [Recovering/Resolving]
